FAERS Safety Report 19580976 (Version 1)
Quarter: 2021Q3

REPORT INFORMATION
  Report Type: Spontaneous
  Country: US (occurrence: US)
  Receive Date: 20210719
  Receipt Date: 20210719
  Transmission Date: 20211014
  Serious: No
  Sender: FDA-Public Use
  Company Number: None

PATIENT
  Sex: Female
  Weight: 63 kg

DRUGS (13)
  1. HYDROCHLOROTHIAZIDE. [Concomitant]
     Active Substance: HYDROCHLOROTHIAZIDE
  2. MULTIVITAMIN [Concomitant]
     Active Substance: VITAMINS
  3. PRAMIPEXOLE DIHYDROCHLORIDE. [Concomitant]
     Active Substance: PRAMIPEXOLE DIHYDROCHLORIDE
  4. AROMASIN [Concomitant]
     Active Substance: EXEMESTANE
  5. CARBIDOPA?LEVODOPA [Concomitant]
     Active Substance: CARBIDOPA\LEVODOPA
  6. EVEROLIMUS. [Suspect]
     Active Substance: EVEROLIMUS
     Indication: PARKINSON^S DISEASE
     Route: 048
  7. ENALAPRIL [Concomitant]
     Active Substance: ENALAPRIL
  8. PRESERVISION [Concomitant]
     Active Substance: MINERALS\VITAMINS
  9. DEXAMETHASONE. [Suspect]
     Active Substance: DEXAMETHASONE
     Indication: PARKINSON^S DISEASE
     Route: 048
  10. CANNABIS MEDICAL [Concomitant]
  11. CITALOPRAM HYDROBROMIDE. [Concomitant]
     Active Substance: CITALOPRAM HYDROBROMIDE
  12. OXYCODONE [Concomitant]
     Active Substance: OXYCODONE
  13. FOSAMAX [Concomitant]
     Active Substance: ALENDRONATE SODIUM

REACTIONS (1)
  - Hospice care [None]
